FAERS Safety Report 7047769-8 (Version None)
Quarter: 2010Q4

REPORT INFORMATION
  Report Type: 
  Country: None (occurrence: None)
  Receive Date: 20101015
  Receipt Date: 20101004
  Transmission Date: 20110411
  Serious: Yes (Other)
  Sender: FDA-Public Use
  Company Number: US-PFIZER INC-2010125793

PATIENT
  Sex: Female
  Weight: 64.853 kg

DRUGS (16)
  1. TOVIAZ [Suspect]
     Indication: URINARY INCONTINENCE
     Dosage: 4 MG, 1X/DAY
     Route: 048
     Dates: start: 20100901, end: 20100928
  2. DETROL [Suspect]
     Indication: URINARY INCONTINENCE
     Dosage: 1X/DAY
     Route: 048
     Dates: end: 20100901
  3. OSCAL 500-D [Concomitant]
     Indication: OSTEOPOROSIS
     Dosage: 2X/DAY
     Route: 048
  4. VITAMIN D [Concomitant]
     Indication: OSTEOPOROSIS
     Dosage: 50000 IU, MONTHLY
     Route: 048
  5. BENADRYL [Concomitant]
     Indication: SEASONAL ALLERGY
     Dosage: 25 MG, 1X/DAY
     Route: 048
  6. NASONEX [Concomitant]
     Indication: SEASONAL ALLERGY
     Dosage: 2X/DAY
     Route: 045
  7. WELLBUTRIN [Concomitant]
     Indication: DEPRESSION
     Dosage: 15 MG, 2X/DAY
     Route: 048
  8. ASPIRIN [Concomitant]
     Indication: ANTICOAGULANT THERAPY
     Dosage: 325 MG, 1X/DAY
  9. FOSAMAX [Concomitant]
     Indication: OSTEOPOROSIS
     Dosage: 70 MG, WEEKLY
     Route: 048
  10. LASIX [Concomitant]
     Indication: DIURETIC THERAPY
     Dosage: 30 MG, AS NEEDED
     Route: 048
  11. CRESTOR [Concomitant]
     Indication: BLOOD CHOLESTEROL INCREASED
     Dosage: 1X/DAY
     Route: 048
     Dates: start: 20090101
  12. LEVOTHYROXINE SODIUM [Concomitant]
     Indication: THYROID DISORDER
     Dosage: 25 UG, 1X/DAY
     Route: 048
     Dates: start: 20090101
  13. COZAAR [Concomitant]
     Indication: HYPERTENSION
     Dosage: 500 MG, 1X/DAY
     Route: 048
     Dates: start: 20090101
  14. LISINOPRIL [Concomitant]
     Indication: HYPERTENSION
     Dosage: 40 MG, 1X/DAY
     Route: 048
     Dates: start: 20090101
  15. DARVOCET [Concomitant]
     Indication: PAIN
     Dosage: 500 MG, 1X/DAY
     Route: 048
  16. KLONOPIN [Concomitant]
     Indication: NERVOUS SYSTEM DISORDER
     Dosage: 0.5 MG, 2X/DAY
     Route: 048

REACTIONS (1)
  - HEADACHE [None]
